FAERS Safety Report 7062901-8 (Version None)
Quarter: 2010Q4

REPORT INFORMATION
  Report Type: 
  Country: None (occurrence: None)
  Receive Date: 20101026
  Receipt Date: 20100218
  Transmission Date: 20110411
  Serious: No
  Sender: FDA-Public Use
  Company Number: US-PFIZER INC-2010022967

PATIENT
  Sex: Male
  Weight: 73.03 kg

DRUGS (10)
  1. LIPITOR [Suspect]
     Indication: BLOOD CHOLESTEROL INCREASED
     Dosage: 10 MG, 1X/DAY
     Route: 048
     Dates: start: 20060101, end: 20100217
  2. ZOCOR [Concomitant]
     Dosage: 20 MG, 1X/DAY
  3. VALSARTAN [Concomitant]
     Dosage: 160 MG, UNK
  4. HYDROCHLOROTHIAZIDE [Concomitant]
     Dosage: 12.5 MG, UNK
  5. ASCORBIC ACID [Concomitant]
     Dosage: UNK
  6. COENZYME Q10 [Concomitant]
     Dosage: 200 MG, UNK
  7. FISH OIL [Concomitant]
     Dosage: 1000 MG, 2X/DAY
  8. TOPROL-XL [Concomitant]
     Dosage: UNK
  9. ACETYLSALICYLIC ACID [Concomitant]
     Dosage: UNK
  10. GRAPE SEED [Concomitant]
     Dosage: UNK

REACTIONS (2)
  - MUSCULOSKELETAL PAIN [None]
  - MYALGIA [None]
